FAERS Safety Report 16083989 (Version 1)
Quarter: 2019Q2

REPORT INFORMATION
  Report Type: Spontaneous
  Country: US (occurrence: US)
  Receive Date: 20190316
  Receipt Date: 20190316
  Transmission Date: 20190711
  Serious: Yes (Disabling)
  Sender: FDA-Public Use
  Company Number: None

PATIENT
  Age: 26 Year
  Sex: Female
  Weight: 60.75 kg

DRUGS (4)
  1. CHLORELLA [Concomitant]
  2. DONG QUAI [Concomitant]
     Active Substance: ANGELICA SINENSIS ROOT
  3. HYDROCODONE/ACETAMINOPHEN 5-325 [Suspect]
     Active Substance: ACETAMINOPHEN\HYDROCODONE
     Indication: ADNEXA UTERI PAIN
     Dosage: ?          QUANTITY:12 TABLET(S);?
     Route: 048
  4. TUMERIC [Concomitant]
     Active Substance: HERBALS\TURMERIC

REACTIONS (5)
  - Abdominal pain [None]
  - Pain [None]
  - Product formulation issue [None]
  - Migraine [None]
  - Drug ineffective [None]

NARRATIVE: CASE EVENT DATE: 20190316
